FAERS Safety Report 16389895 (Version 2)
Quarter: 2024Q3

REPORT INFORMATION
  Report Type: Report from Study
  Country: ES (occurrence: ES)
  Receive Date: 20190604
  Receipt Date: 20240717
  Transmission Date: 20241016
  Serious: Yes (Other)
  Sender: PURDUE
  Company Number: ES-KYOWAKIRIN-2019BKK004578

PATIENT
  Age: 74 Year
  Sex: Female

DRUGS (30)
  1. MORPHINE SULFATE [Suspect]
     Active Substance: MORPHINE SULFATE
     Indication: Product used for unknown indication
     Dosage: 180 MG, Q24H (180 MG IN 24 HOURS)
     Route: 065
  2. MORPHINE [Suspect]
     Active Substance: MORPHINE
     Indication: Analgesic therapy
     Dosage: UNK
     Route: 042
     Dates: start: 2016
  3. MORPHINE [Suspect]
     Active Substance: MORPHINE
     Indication: Product used for unknown indication
     Dosage: 5 MG, UNK
     Route: 058
     Dates: start: 2016
  4. FENTANYL [Suspect]
     Active Substance: FENTANYL\FENTANYL CITRATE
     Indication: Analgesic therapy
     Dosage: 50 (REDUCING DOSE UP TO A DOSE OF 50)
     Route: 062
     Dates: start: 2017
  5. FENTANYL [Suspect]
     Active Substance: FENTANYL\FENTANYL CITRATE
     Dosage: 125 UNK, UNK
     Route: 062
     Dates: start: 201901
  6. FENTANYL [Suspect]
     Active Substance: FENTANYL\FENTANYL CITRATE
     Dosage: 75 UNK, UNK
     Route: 062
     Dates: start: 2018
  7. FENTANYL [Suspect]
     Active Substance: FENTANYL\FENTANYL CITRATE
     Dosage: 125 UNK, UNK
     Route: 062
     Dates: start: 2018
  8. FENTANYL [Suspect]
     Active Substance: FENTANYL\FENTANYL CITRATE
     Dosage: 50 UNK, UNK
     Route: 062
     Dates: start: 2017
  9. FENTANYL [Suspect]
     Active Substance: FENTANYL\FENTANYL CITRATE
     Dosage: 100 UNK, UNK
     Route: 062
     Dates: start: 201705
  10. FENTANYL [Suspect]
     Active Substance: FENTANYL\FENTANYL CITRATE
     Dosage: 50 UNK, UNK
     Route: 062
     Dates: start: 2016
  11. FENTANYL [Suspect]
     Active Substance: FENTANYL\FENTANYL CITRATE
     Dosage: 100 UNK, UNK
     Route: 062
  12. FENTANYL [Suspect]
     Active Substance: FENTANYL\FENTANYL CITRATE
     Indication: Breakthrough pain
     Dosage: UNK TABLET, DAILY (1-2 RESUCES PER DAY)
     Route: 060
  13. FENTANYL [Suspect]
     Active Substance: FENTANYL\FENTANYL CITRATE
     Dosage: SINGLE DAILY RESCUE PER EPISODE OF INCIDENTAL VOLITIONAL IOD
     Route: 060
  14. FENTANYL [Suspect]
     Active Substance: FENTANYL\FENTANYL CITRATE
     Dosage: 6 UNK, DAILY (6 RESCUES DAILY)
     Route: 060
     Dates: start: 2016
  15. FENTANYL [Suspect]
     Active Substance: FENTANYL\FENTANYL CITRATE
     Dosage: 5 UNK, DAILY (5 RESCUES DAILY)
     Route: 060
     Dates: start: 201705
  16. FENTANYL [Suspect]
     Active Substance: FENTANYL\FENTANYL CITRATE
     Dosage: 100 MCG, UNK (100 UG)
     Route: 060
     Dates: start: 2016
  17. FENTANYL [Suspect]
     Active Substance: FENTANYL\FENTANYL CITRATE
     Dosage: UNK
     Route: 060
     Dates: start: 2019
  18. FENTANYL [Suspect]
     Active Substance: FENTANYL\FENTANYL CITRATE
     Dosage: UNK
     Route: 060
     Dates: start: 2016
  19. 5-FLUOROURACIL                     /00098801/ [Concomitant]
     Indication: Rectal adenocarcinoma
     Dosage: UNKNOWN
     Route: 065
  20. 5-FLUOROURACIL                     /00098801/ [Concomitant]
     Dosage: 1 UNK, 2/WEEK (FORENIGHTLY)
     Route: 065
     Dates: start: 2018
  21. LIDOCAINE [Concomitant]
     Active Substance: LIDOCAINE
     Indication: Analgesic therapy
     Dosage: UNKNOWN
     Route: 065
     Dates: start: 2018
  22. LEUCOVORIN [Concomitant]
     Active Substance: LEUCOVORIN\LEUCOVORIN CALCIUM
     Indication: Rectal adenocarcinoma
     Dosage: 1 UNK, 2/WEEK (FORENIGHTLY)
     Route: 065
     Dates: start: 2018
  23. LEUCOVORIN [Concomitant]
     Active Substance: LEUCOVORIN\LEUCOVORIN CALCIUM
     Dosage: UNKNOWN
     Route: 065
  24. PREGABALIN [Concomitant]
     Active Substance: PREGABALIN
     Indication: Analgesic therapy
     Dosage: 75 MG, Q12H
     Route: 065
  25. IRINOTECAN [Concomitant]
     Active Substance: IRINOTECAN
     Indication: Rectal adenocarcinoma
     Dosage: 1 UNK, 2/WEEK (1X/2 WEEKS)
     Route: 065
  26. IRINOTECAN [Concomitant]
     Active Substance: IRINOTECAN
     Dosage: DOSE REDUCTION UP TO 60 PERCENT
     Route: 065
     Dates: start: 201701
  27. DEXKETOPROFEN [Concomitant]
     Active Substance: DEXKETOPROFEN
     Indication: Analgesic therapy
     Dosage: 25 MG, Q8H
     Route: 065
     Dates: start: 2014
  28. DULOXETINE [Concomitant]
     Active Substance: DULOXETINE
     Indication: Analgesic therapy
     Dosage: 60 MG, Q12H (60 MG EVERY 12 HOURS)
     Route: 065
     Dates: start: 2018
  29. METAMIZOLE [Concomitant]
     Active Substance: METAMIZOLE
     Indication: Analgesic therapy
     Dosage: 575 MG, Q8H
     Route: 065
     Dates: start: 2014
  30. DEXAMETHASONE [Concomitant]
     Active Substance: DEXAMETHASONE
     Indication: Product used for unknown indication
     Dosage: UNK
     Route: 065

REACTIONS (5)
  - Myoclonus [Unknown]
  - Nausea [Unknown]
  - Hallucination [Unknown]
  - Somnolence [Unknown]
  - Dry mouth [Unknown]

NARRATIVE: CASE EVENT DATE: 20170501
